FAERS Safety Report 7575103-3 (Version None)
Quarter: 2011Q2

REPORT INFORMATION
  Report Type: 
  Country: None (occurrence: None)
  Receive Date: 20110627
  Receipt Date: 20110621
  Transmission Date: 20111010
  Serious: Yes (Other)
  Sender: FDA-Public Use
  Company Number: US-PFIZER INC-2011137221

PATIENT
  Sex: Female
  Weight: 82 kg

DRUGS (11)
  1. CHANTIX [Suspect]
     Indication: SMOKING CESSATION THERAPY
     Dosage: 0.5 MG, 1X/DAY
     Route: 048
     Dates: start: 20110607, end: 20110601
  2. CLONIDINE [Concomitant]
     Dosage: UNK
  3. EFFEXOR [Concomitant]
     Indication: ANXIETY
     Dosage: UNK
     Route: 048
  4. EFFEXOR [Concomitant]
     Indication: DEPRESSION
  5. CHANTIX [Interacting]
     Dosage: 1 MG, 2X/DAY
     Dates: start: 20110601, end: 20110621
  6. KLONOPIN [Interacting]
     Indication: NERVOUS SYSTEM DISORDER
     Dosage: 1 MG, 3X/DAY
     Route: 048
  7. NORCO [Concomitant]
     Indication: PAIN
     Dosage: 7.5 MG, 1X/DAY
     Route: 048
  8. DILANTIN [Concomitant]
     Indication: CONVULSION
     Dosage: 100 MG, 5X/DAY
     Route: 048
  9. NORVASC [Concomitant]
     Indication: HYPERTENSION
     Dosage: 2 MG, 1X/DAY
     Route: 048
  10. ZOCOR [Concomitant]
     Dosage: 40 MG, 1X/DAY
     Route: 048
  11. CARDIZEM [Concomitant]
     Indication: HYPERTENSION
     Dosage: 40 MG, 1X/DAY
     Route: 048

REACTIONS (14)
  - INSOMNIA [None]
  - SUICIDAL IDEATION [None]
  - ABNORMAL DREAMS [None]
  - NAUSEA [None]
  - DRUG INTERACTION [None]
  - BLOOD PRESSURE INCREASED [None]
  - DYSPNOEA [None]
  - HEADACHE [None]
  - NIGHT SWEATS [None]
  - FATIGUE [None]
  - HEART RATE INCREASED [None]
  - FEELING ABNORMAL [None]
  - AGITATION [None]
  - DRUG INEFFECTIVE [None]
